FAERS Safety Report 6391295-6 (Version None)
Quarter: 2009Q4

REPORT INFORMATION
  Report Type: 
  Country: None (occurrence: None)
  Receive Date: 20091007
  Receipt Date: 20090923
  Transmission Date: 20100525
  Serious: Yes (Other)
  Sender: FDA-Public Use
  Company Number: PHHY2009FR31196

PATIENT
  Sex: Female
  Weight: 44 kg

DRUGS (13)
  1. ACLASTA [Suspect]
     Indication: OSTEOPOROSIS
     Dosage: 5 MG, ONCE/SINGLE
     Dates: start: 20081212
  2. RIVOTRIL [Concomitant]
  3. TEMESTA [Concomitant]
  4. PREVISCAN [Concomitant]
     Indication: ARRHYTHMIA
  5. FLECAINIDE ACETATE [Concomitant]
     Indication: ARRHYTHMIA
     Dosage: UNK
  6. CALDINE [Concomitant]
  7. DIFFU K [Concomitant]
  8. ZOCOR [Concomitant]
  9. HYZAAR [Concomitant]
  10. ALDACTONE [Concomitant]
  11. OROCAL D3 [Concomitant]
  12. NEXIUM [Concomitant]
  13. ZOMETA [Concomitant]

REACTIONS (7)
  - BURNING SENSATION [None]
  - CAROTID ARTERY STENOSIS [None]
  - HALLUCINATION, VISUAL [None]
  - HEADACHE [None]
  - MYALGIA [None]
  - SLEEP DISORDER [None]
  - VERTEBRAL ARTERY STENOSIS [None]
